FAERS Safety Report 17009576 (Version 2)
Quarter: 2019Q4

REPORT INFORMATION
  Report Type: Spontaneous
  Country: JP (occurrence: JP)
  Receive Date: 20191108
  Receipt Date: 20191119
  Transmission Date: 20200122
  Serious: Yes (Other)
  Sender: FDA-Public Use
  Company Number: JP-PFIZER INC-2019481827

PATIENT
  Age: 76 Year
  Sex: Male

DRUGS (1)
  1. CELECOX [Suspect]
     Active Substance: CELECOXIB
     Dosage: 100 MG, 2X/DAY (TWICE DAILY, AFTER BREAKFAST AND DINNER)
     Route: 048

REACTIONS (1)
  - Plasma cell myeloma [Unknown]
